FAERS Safety Report 8543373-0 (Version None)
Quarter: 2012Q3

REPORT INFORMATION
  Report Type: 
  Country: None (occurrence: None)
  Receive Date: 20120727
  Receipt Date: 20120716
  Transmission Date: 20120928
  Serious: Yes (Other)
  Sender: FDA-Public Use
  Company Number: CA-NOVOPROD-353051

PATIENT
  Sex: Female

DRUGS (2)
  1. METFORMIN HYDROCHLORIDE [Concomitant]
     Dosage: 3 X 500MG DAILY
  2. NOVOLIN GE TORONTO PENFIL [Suspect]
     Indication: TYPE 2 DIABETES MELLITUS
     Dosage: 2 U EVERY HOUR
     Route: 058
     Dates: start: 20120531

REACTIONS (5)
  - REACTION TO DRUG EXCIPIENTS [None]
  - BLOOD GLUCOSE INCREASED [None]
  - MUSCLE SPASMS [None]
  - HEPATIC FUNCTION ABNORMAL [None]
  - BLOOD ALKALINE PHOSPHATASE INCREASED [None]
